FAERS Safety Report 21121499 (Version 2)
Quarter: 2023Q1

REPORT INFORMATION
  Report Type: Spontaneous
  Country: FR (occurrence: FR)
  Receive Date: 20220722
  Receipt Date: 20230203
  Transmission Date: 20230417
  Serious: Yes (Hospitalization)
  Sender: FDA-Public Use
  Company Number: None

PATIENT
  Age: 67 Year
  Sex: Male
  Weight: 80.85 kg

DRUGS (4)
  1. ALIMTA [Suspect]
     Active Substance: PEMETREXED DISODIUM
     Indication: Lung neoplasm malignant
     Dosage: 200 MG, CYCLICAL
     Route: 042
     Dates: start: 20220111, end: 20220427
  2. BISOPROLOL [Suspect]
     Active Substance: BISOPROLOL
     Indication: Myocardial ischaemia
     Dosage: 2.5 MG, DAILY
     Route: 048
  3. KEYTRUDA [Suspect]
     Active Substance: PEMBROLIZUMAB
     Indication: Lung neoplasm malignant
     Dosage: UNK UNK, CYCLICAL
     Route: 065
     Dates: start: 20220111, end: 20220406
  4. CARBOPLATIN [Concomitant]
     Active Substance: CARBOPLATIN
     Indication: Lung neoplasm malignant
     Dosage: UNK, CYCLICAL
     Route: 042
     Dates: start: 20220111, end: 20220316

REACTIONS (1)
  - Extremity necrosis [Recovering/Resolving]

NARRATIVE: CASE EVENT DATE: 20220401
